FAERS Safety Report 17607889 (Version 1)
Quarter: 2020Q1

REPORT INFORMATION
  Report Type: Spontaneous
  Country: DK (occurrence: DK)
  Receive Date: 20200331
  Receipt Date: 20200331
  Transmission Date: 20200409
  Serious: Yes (Other)
  Sender: FDA-Public Use
  Company Number: DK-NAPPMUNDI-GBR-2020-0075881

PATIENT
  Age: 89 Year
  Sex: Female

DRUGS (19)
  1. OXYCODONE HYDROCHLORIDE. [Suspect]
     Active Substance: OXYCODONE HYDROCHLORIDE
     Indication: PAIN
     Dosage: 5 MG, Q12H (STYRKE: 5 MG)
     Route: 048
     Dates: start: 20200216, end: 20200217
  2. MOVICOL [Concomitant]
     Active Substance: POLYETHYLENE GLYCOL 3350\POTASSIUM CHLORIDE\SODIUM BICARBONATE\SODIUM CHLORIDE
     Indication: CONSTIPATION
     Dosage: 1 DF, PRN 1 DF, UNK (STYRKE: UNKOWN, DOSIS: 1 BREV EFTER EBHOV HOJST 1 GANG DAGLIG)
     Route: 048
     Dates: start: 201807
  3. CALCIUM + VITAMIN D                /01483701/ [Concomitant]
     Active Substance: CALCIUM\VITAMIN D
     Indication: VITAMIN SUPPLEMENTATION
     Dosage: STYRKE: 400 MG + 19 MCG
     Route: 048
     Dates: start: 201808
  4. PREDNISOLONE. [Concomitant]
     Active Substance: PREDNISOLONE
     Indication: ADRENOCORTICAL STEROID THERAPY
     Dosage: 5 MG, DAILY (STYRKE: 2.5 MG)
     Route: 048
     Dates: start: 201807
  5. ALENDRONIC ACID [Concomitant]
     Active Substance: ALENDRONIC ACID
     Indication: OSTEOPOROSIS
     Dosage: 70 MG, WEEKLY (STYRKE: 70 MG)
     Route: 048
     Dates: start: 201606
  6. BISACODYL. [Concomitant]
     Active Substance: BISACODYL
     Indication: CONSTIPATION
     Dosage: 5 MG, PRN NEEDED, STYRKE 5 MG, DOSIS: 1 TABLET EFTER BEHOV HOJST 1 GANGE DAGLIG)
     Route: 048
     Dates: start: 201811
  7. DOLOPROCT                          /00951901/ [Concomitant]
     Indication: HAEMORRHOIDS
     Dosage: 2 DF, DAILY (STYRKE: UNKOWN)
     Route: 054
     Dates: start: 201810
  8. GLYCOPYRRONIUM [Concomitant]
     Active Substance: GLYCOPYRRONIUM
     Indication: CHRONIC OBSTRUCTIVE PULMONARY DISEASE
     Dosage: 1 DF, DAILY (STYRKE: 44 MCG)
     Route: 055
     Dates: start: 201605
  9. MAGNESIUM OXIDE. [Concomitant]
     Active Substance: MAGNESIUM OXIDE
     Indication: CONSTIPATION
     Dosage: 1000 MG, PRN (STRYKE: 500MG, DOSIS: 2 TABLETTER EFTER BEHOV HOIST 1 GANG DAGLIG)
     Route: 048
     Dates: start: 201706
  10. BRENTACORT [Concomitant]
     Active Substance: HYDROCORTISONE\MICONAZOLE NITRATE
     Indication: ECZEMA
     Dosage: 2 DF, DAILY (STYRKE: 20+10 MG/G)
     Route: 003
     Dates: start: 201910
  11. FORMOTEROL W/BUDESONIDE [Concomitant]
     Active Substance: BUDESONIDE\FORMOTEROL
     Indication: ASTHMA
     Dosage: 2 DF, DAILY (STYRKE: 4.5 + 160 MCG/DOSIS)
     Route: 055
     Dates: start: 201801
  12. LOSARTAN. [Concomitant]
     Active Substance: LOSARTAN
     Indication: HYPERTENSION
     Dosage: 25 MG, DAILY (STYRKE: 12.5 MG)
     Route: 048
     Dates: start: 201905
  13. INNOHEP [Concomitant]
     Active Substance: TINZAPARIN SODIUM
     Indication: PRODUCT USED FOR UNKNOWN INDICATION
     Dosage: STYRKE: UNKNOWN, DOSIS: UNKNOWN
  14. OXYNORM DISPERSA [Suspect]
     Active Substance: OXYCODONE HYDROCHLORIDE
     Indication: PAIN
     Dosage: 5 MG, PRN (STYRKE:5MG, DOSIS: VED BEHOV 4 GANGE DAGLIGT)
     Route: 048
     Dates: start: 20200216, end: 20200217
  15. XYLOCAIN                           /00033402/ [Concomitant]
     Indication: LOCAL ANAESTHESIA
     Dosage: 1 DF, PRN (STYRKE: 5%, DOSIS: 1 PASMORING EFTER BEHOV)
     Route: 003
     Dates: start: 201912
  16. BISOPROLOL [Concomitant]
     Active Substance: BISOPROLOL
     Indication: CARDIAC DISORDER
     Dosage: 5 MG, DAILY (STYRKE: 2.5 MG)
     Route: 048
     Dates: start: 201907
  17. SPIRONOLACTON [Concomitant]
     Active Substance: SPIRONOLACTONE
     Indication: OEDEMA
     Dosage: 25 MG, DAILY (STYRKE: 25 MG)
     Route: 048
     Dates: start: 201909
  18. SALBUTAMOL [Concomitant]
     Active Substance: ALBUTEROL
     Indication: ASTHMA
     Dosage: 1 DF, PRN (200MCG/DOSIS DOSIS: 1 SUG EFTER BEHOV HOJST 6 GANGE DAGLIG)
     Route: 055
     Dates: start: 201504
  19. PANODIL [Concomitant]
     Active Substance: ACETAMINOPHEN
     Indication: PAIN
     Dosage: 3990 MG, DAILY (STYRKE: 665 MG)
     Route: 048
     Dates: start: 201606

REACTIONS (1)
  - Delirium [Recovered/Resolved]

NARRATIVE: CASE EVENT DATE: 20200217
